FAERS Safety Report 10244646 (Version 1)
Quarter: 2014Q2

REPORT INFORMATION
  Report Type: Report from Study
  Country: JP (occurrence: JP)
  Receive Date: 20140618
  Receipt Date: 20140618
  Transmission Date: 20141212
  Serious: Yes (Other)
  Sender: FDA-Public Use
  Company Number: JP-GLAXOSMITHKLINE-B0988784A

PATIENT
  Age: 51 Year
  Sex: Female

DRUGS (5)
  1. TYKERB [Suspect]
     Indication: BREAST CANCER
     Route: 048
     Dates: start: 20121017, end: 20121228
  2. RANMARK [Concomitant]
     Indication: BREAST CANCER
     Route: 058
     Dates: start: 20121017, end: 20121219
  3. U-PAN [Concomitant]
     Indication: DEPRESSION
     Route: 048
  4. DEPROMEL [Concomitant]
     Indication: DEPRESSION
     Route: 048
  5. DOGMATYL [Concomitant]
     Indication: DEPRESSION
     Route: 048

REACTIONS (2)
  - Cellulitis [Recovering/Resolving]
  - Paronychia [Unknown]
